FAERS Safety Report 6073380-1 (Version None)
Quarter: 2009Q1

REPORT INFORMATION
  Report Type: 
  Country: None (occurrence: None)
  Receive Date: 20090211
  Receipt Date: 20090129
  Transmission Date: 20090719
  Serious: Yes (Hospitalization)
  Sender: FDA-Public Use
  Company Number: FR-SANOFI-SYNTHELABO-A02200900246

PATIENT
  Sex: Female

DRUGS (8)
  1. EQUANIL [Interacting]
     Indication: DRUG USE FOR UNKNOWN INDICATION
     Route: 048
     Dates: start: 20080101, end: 20090101
  2. EQUANIL [Interacting]
     Dosage: UNK
     Route: 048
     Dates: start: 20090105
  3. NOCTAMIDE [Interacting]
     Indication: DRUG USE FOR UNKNOWN INDICATION
     Route: 048
     Dates: start: 20080101, end: 20090101
  4. NOCTAMIDE [Interacting]
     Route: 048
     Dates: start: 20090101, end: 20090101
  5. STILNOX [Suspect]
     Indication: DRUG USE FOR UNKNOWN INDICATION
     Route: 048
     Dates: start: 20080101, end: 20090101
  6. BROMAZEPAM [Interacting]
     Indication: DRUG USE FOR UNKNOWN INDICATION
     Route: 048
     Dates: start: 20080101, end: 20090101
  7. BROMAZEPAM [Interacting]
     Route: 048
     Dates: start: 20090101, end: 20090101
  8. BROMAZEPAM [Interacting]
     Dosage: UNK
     Route: 048
     Dates: start: 20090105

REACTIONS (5)
  - FALL [None]
  - HYPOTONIA [None]
  - MALAISE [None]
  - SYNCOPE [None]
  - TRAUMATIC SHOCK [None]
